FAERS Safety Report 4949638-3 (Version None)
Quarter: 2006Q1

REPORT INFORMATION
  Report Type: 
  Country: None (occurrence: None)
  Receive Date: 20060316
  Receipt Date: 20060307
  Transmission Date: 20060701
  Serious: Yes (Death)
  Sender: FDA-Public Use
  Company Number: 2006-01-0686

PATIENT
  Age: 66 Year
  Sex: Female

DRUGS (6)
  1. INTRON A [Suspect]
     Indication: MYCOSIS FUNGOIDES
     Dosage: 1 MIU TIW SUBCUTANEOUS
     Route: 058
  2. NEURONTIN [Concomitant]
  3. SYNTHROID [Concomitant]
  4. MULTIVITAMIN [Concomitant]
  5. CLOBETASOL CREAM [Concomitant]
  6. 8-MOP (METHOXSALEN) [Concomitant]

REACTIONS (1)
  - DISEASE PROGRESSION [None]
